FAERS Safety Report 5625788-3 (Version None)
Quarter: 2008Q1

REPORT INFORMATION
  Report Type: 
  Country: None (occurrence: None)
  Receive Date: 20080211
  Receipt Date: 20080128
  Transmission Date: 20080703
  Serious: Yes (Other)
  Sender: FDA-Public Use
  Company Number: 2007AP000545

PATIENT
  Age: 34 Year
  Sex: Female

DRUGS (3)
  1. PAROXETINE HCL [Suspect]
     Dosage: 10 MG; PO, 10 MG; PO, 20 MG; PO
     Route: 048
     Dates: start: 20030201
  2. PAROXETINE HCL [Suspect]
     Dosage: 10 MG; PO, 10 MG; PO, 20 MG; PO
     Route: 048
     Dates: start: 20030201
  3. PAROXETINE HCL [Suspect]
     Dosage: 10 MG; PO, 10 MG; PO, 20 MG; PO
     Route: 048
     Dates: start: 20030218

REACTIONS (11)
  - AGITATION [None]
  - DECREASED APPETITE [None]
  - DEPRESSED MOOD [None]
  - DISSOCIATION [None]
  - DISTURBANCE IN ATTENTION [None]
  - DRUG WITHDRAWAL SYNDROME [None]
  - FEELING ABNORMAL [None]
  - MUSCULOSKELETAL PAIN [None]
  - SOMNOLENCE [None]
  - SUICIDAL IDEATION [None]
  - TEARFULNESS [None]
